FAERS Safety Report 21542084 (Version 1)
Quarter: 2022Q4

REPORT INFORMATION
  Report Type: Spontaneous
  Country: CN (occurrence: CN)
  Receive Date: 20221102
  Receipt Date: 20221102
  Transmission Date: 20230113
  Serious: Yes (Hospitalization)
  Sender: FDA-Public Use
  Company Number: CN-PFIZER INC-PV202200092889

PATIENT
  Age: 56 Year
  Sex: Male
  Weight: 50 kg

DRUGS (3)
  1. DACOMITINIB [Suspect]
     Active Substance: DACOMITINIB
     Indication: Lung neoplasm malignant
     Dosage: 45 MG, 1X/DAY
     Route: 048
     Dates: start: 20220701, end: 20221008
  2. CABOZANTINIB [Suspect]
     Active Substance: CABOZANTINIB
     Indication: Lung neoplasm malignant
     Dosage: 1 TABLET, 1X/DAY
     Route: 048
     Dates: start: 20220922, end: 20220922
  3. CAPMATINIB [Suspect]
     Active Substance: CAPMATINIB
     Indication: Lung neoplasm malignant
     Dosage: 200 MG, 2X/DAY
     Route: 048
     Dates: start: 20220922, end: 20221008

REACTIONS (2)
  - Rash pustular [Recovering/Resolving]
  - Drug eruption [Recovering/Resolving]

NARRATIVE: CASE EVENT DATE: 20221014
